FAERS Safety Report 23698346 (Version 1)
Quarter: 2024Q2

REPORT INFORMATION
  Report Type: Spontaneous
  Country: US (occurrence: None)
  Receive Date: 20240402
  Receipt Date: 20240402
  Transmission Date: 20240716
  Serious: Yes (Disabling)
  Sender: FDA-Public Use
  Company Number: None

PATIENT
  Age: 41 Year
  Sex: Female
  Weight: 67.5 kg

DRUGS (1)
  1. OZEMPIC [Suspect]
     Active Substance: SEMAGLUTIDE
     Indication: Weight decreased
     Dosage: OTHER QUANTITY : 0.25 MG;?OTHER FREQUENCY : ONCE A WEEK;?OTHER ROUTE : SUBCUTANEOUSLY;?
     Route: 050
     Dates: start: 20240304, end: 20240325

REACTIONS (5)
  - Anxiety [None]
  - Depression [None]
  - Nervousness [None]
  - Diarrhoea [None]
  - Polymenorrhoea [None]

NARRATIVE: CASE EVENT DATE: 20240305
